FAERS Safety Report 17445564 (Version 1)
Quarter: 2020Q1

REPORT INFORMATION
  Report Type: Spontaneous
  Country: US (occurrence: US)
  Receive Date: 20200221
  Receipt Date: 20200221
  Transmission Date: 20200409
  Serious: No
  Sender: FDA-Public Use
  Company Number: US-SUNOVION-2020SUN000470

PATIENT
  Age: 77 Year
  Sex: Male

DRUGS (3)
  1. LONHALA MAGNAIR [Suspect]
     Active Substance: GLYCOPYRROLATE
     Dosage: 25 ?G, BID
     Route: 055
     Dates: end: 20200205
  2. IPRATROPIUM [Concomitant]
     Active Substance: IPRATROPIUM
  3. SPIRIVA [Concomitant]
     Active Substance: TIOTROPIUM BROMIDE MONOHYDRATE

REACTIONS (5)
  - Chest discomfort [Unknown]
  - Swelling face [Unknown]
  - Prostatomegaly [Unknown]
  - Productive cough [Unknown]
  - Respiratory tract congestion [Unknown]
